FAERS Safety Report 4638810-8 (Version None)
Quarter: 2005Q2

REPORT INFORMATION
  Report Type: 
  Country: None (occurrence: None)
  Receive Date: 20050418
  Receipt Date: 20050418
  Transmission Date: 20051028
  Serious: Yes (Hospitalization)
  Sender: FDA-Public Use
  Company Number: None

PATIENT
  Age: 33 Year
  Sex: Female
  Weight: 61.2356 kg

DRUGS (1)
  1. BENADRYL [Suspect]
     Indication: PROPHYLAXIS
     Dosage: 25MG    1X    INTRAVENOU
     Route: 042
     Dates: start: 20050416, end: 20050416

REACTIONS (2)
  - EXCITABILITY [None]
  - TREMOR [None]
